FAERS Safety Report 11705601 (Version 2)
Quarter: 2015Q4

REPORT INFORMATION
  Report Type: Spontaneous
  Country: US (occurrence: US)
  Receive Date: 20151106
  Receipt Date: 20151106
  Transmission Date: 20160304
  Serious: Yes (Other)
  Sender: FDA-Public Use
  Company Number: US-JNJFOC-20151019862

PATIENT

DRUGS (1)
  1. BENADRYL [Suspect]
     Active Substance: DIPHENHYDRAMINE HYDROCHLORIDE
     Indication: EUPHORIC MOOD
     Dosage: 56 PILLS
     Route: 048

REACTIONS (5)
  - Intentional overdose [Unknown]
  - Intentional product misuse [Unknown]
  - Fall [Unknown]
  - Loss of consciousness [Unknown]
  - Hallucination [Unknown]
